FAERS Safety Report 20824792 (Version 1)
Quarter: 2022Q2

REPORT INFORMATION
  Report Type: Spontaneous
  Country: GB (occurrence: GB)
  Receive Date: 20220513
  Receipt Date: 20220513
  Transmission Date: 20220721
  Serious: Yes (Other)
  Sender: FDA-Public Use
  Company Number: GB-GILEAD-2022-0579101

PATIENT

DRUGS (10)
  1. DARUNAVIR [Suspect]
     Active Substance: DARUNAVIR
     Indication: HIV infection
     Dosage: 1 DOSAGE FORMS DAILY;
     Route: 065
  2. LAMIVUDINE [Suspect]
     Active Substance: LAMIVUDINE
     Indication: HIV infection
     Dosage: UNK
     Route: 065
  3. COMBIVIR [Suspect]
     Active Substance: LAMIVUDINE\ZIDOVUDINE
     Indication: HIV infection
     Dosage: UNK
     Route: 065
  4. EDURANT [Suspect]
     Active Substance: RILPIVIRINE HYDROCHLORIDE
     Indication: HIV infection
     Dosage: UNK
     Route: 065
  5. KALETRA [Suspect]
     Active Substance: LOPINAVIR\RITONAVIR
     Indication: HIV infection
     Dosage: UNK
     Route: 065
  6. LOPINAVIR [Suspect]
     Active Substance: LOPINAVIR
     Indication: HIV infection
     Route: 065
  7. RITONAVIR [Suspect]
     Active Substance: RITONAVIR
     Indication: HIV infection
     Dosage: 1 DOSAGE FORMS DAILY;
     Route: 065
  8. TRIUMEQ [Suspect]
     Active Substance: ABACAVIR SULFATE\DOLUTEGRAVIR SODIUM\LAMIVUDINE
     Indication: HIV infection
     Dosage: UNK
     Route: 065
  9. TYBOST [Suspect]
     Active Substance: COBICISTAT
     Indication: HIV infection
     Dosage: UNK,(REPORTED AS COBICISTAT + DARUNAVIR - UNCLEAR IF SINGLE AGENT OR COMBINATION PRODUCT)
     Route: 065
  10. ZIDOVUDINE [Suspect]
     Active Substance: ZIDOVUDINE
     Indication: HIV infection
     Route: 065

REACTIONS (9)
  - Lipodystrophy acquired [Unknown]
  - Neuropathy peripheral [Unknown]
  - Low density lipoprotein increased [Unknown]
  - Memory impairment [Unknown]
  - Nerve injury [Unknown]
  - Lip discolouration [Unknown]
  - Skin discolouration [Unknown]
  - Nail discolouration [Unknown]
  - Somnolence [Unknown]
